FAERS Safety Report 9290694 (Version 4)
Quarter: 2014Q2

REPORT INFORMATION
  Report Type: Spontaneous
  Country: US (occurrence: US)
  Receive Date: 20130515
  Receipt Date: 20140508
  Transmission Date: 20141212
  Serious: Yes (Death)
  Sender: FDA-Public Use
  Company Number: US-PFIZER INC-2013147730

PATIENT
  Age: 72 Year
  Sex: Male
  Weight: 83.45 kg

DRUGS (6)
  1. ACCUPRIL [Suspect]
     Dosage: UNK
  2. EFFEXOR XR [Suspect]
     Indication: NERVOUSNESS
     Dosage: 150 MG, DAILY
     Dates: start: 201204
  3. EFFEXOR XR [Suspect]
     Indication: EMOTIONAL DISTRESS
  4. EFFEXOR XR [Suspect]
     Indication: DEPRESSION
  5. LOSARTAN [Concomitant]
     Indication: CARDIAC DISORDER
     Dosage: UNK
  6. LOSARTAN [Concomitant]
     Indication: BLOOD PRESSURE ABNORMAL

REACTIONS (5)
  - Cardiac failure [Fatal]
  - Dry mouth [Not Recovered/Not Resolved]
  - Cough [Not Recovered/Not Resolved]
  - Hypotension [Not Recovered/Not Resolved]
  - Asthenia [Not Recovered/Not Resolved]
